FAERS Safety Report 21214683 (Version 1)
Quarter: 2022Q3

REPORT INFORMATION
  Report Type: Spontaneous
  Country: JP (occurrence: JP)
  Receive Date: 20220816
  Receipt Date: 20220816
  Transmission Date: 20221026
  Serious: Yes (Death, Other)
  Sender: FDA-Public Use
  Company Number: JP-INSMED, INC.-2022-02148-JP

PATIENT
  Age: 63 Year
  Sex: Female

DRUGS (1)
  1. ARIKAYCE [Suspect]
     Active Substance: AMIKACIN
     Indication: Mycobacterium avium complex infection
     Dosage: 590 MILLIGRAM, QD
     Route: 055
     Dates: start: 20220302, end: 20220608

REACTIONS (1)
  - Mycobacterium avium complex infection [Fatal]

NARRATIVE: CASE EVENT DATE: 20220616
